FAERS Safety Report 24631870 (Version 1)
Quarter: 2024Q4

REPORT INFORMATION
  Report Type: Spontaneous
  Country: US (occurrence: US)
  Receive Date: 20241118
  Receipt Date: 20241118
  Transmission Date: 20250114
  Serious: No
  Sender: MYLAN
  Company Number: US-MYLANLABS-2024M1101270

PATIENT
  Age: 15 Year

DRUGS (1)
  1. NITROGLYCERIN TRANSDERMAL DELIVERY SYSTEM [Suspect]
     Active Substance: NITROGLYCERIN
     Indication: Tendonitis
     Dosage: 0.2 MILLIGRAM, QH (PER HOUR, DAILY)
     Route: 062

REACTIONS (1)
  - Off label use [Unknown]
